FAERS Safety Report 17771011 (Version 1)
Quarter: 2020Q2

REPORT INFORMATION
  Report Type: Spontaneous
  Country: DE (occurrence: DE)
  Receive Date: 20200512
  Receipt Date: 20200512
  Transmission Date: 20200714
  Serious: Yes (Hospitalization, Other)
  Sender: FDA-Public Use
  Company Number: DE-MYLANLABS-2020M1045617

PATIENT
  Age: 87 Year
  Sex: Male
  Weight: 80 kg

DRUGS (14)
  1. CLOPIDOGREL [Suspect]
     Active Substance: CLOPIDOGREL BISULFATE
     Indication: PRODUCT USED FOR UNKNOWN INDICATION
     Dosage: 75 MG, 1-0-0-0
  2. SITAGLIPTIN [Concomitant]
     Active Substance: SITAGLIPTIN
     Dosage: 50 MG, 1-0-1-0
  3. RAMIPRIL. [Concomitant]
     Active Substance: RAMIPRIL
     Dosage: 5 MG, 1-0-0.5-0
  4. LANTUS [Concomitant]
     Active Substance: INSULIN GLARGINE
     Dosage: 100 IE, 12-0-0-0
     Route: 058
  5. VITAMIN B12 [Concomitant]
     Active Substance: CYANOCOBALAMIN
     Dosage: 1-0-0-0
  6. PANTOPRAZOL                        /01263201/ [Concomitant]
     Active Substance: PANTOPRAZOLE
     Dosage: 40 MG, 1-0-1-0
  7. JARDIANCE [Concomitant]
     Active Substance: EMPAGLIFLOZIN
     Dosage: 10 MG, 1-0-0-0
  8. SIMVASTATIN. [Concomitant]
     Active Substance: SIMVASTATIN
     Dosage: 20 MG, 0-0-1-0
  9. APIDRA [Concomitant]
     Active Substance: INSULIN GLULISINE
     Dosage: 100 IE, 6-0-0-0
     Route: 058
  10. FERRO SANOL [Suspect]
     Active Substance: FERROUS GLYCINE SULFATE
     Indication: PRODUCT USED FOR UNKNOWN INDICATION
     Dosage: 100 MG, 1-0-0-0
  11. METFORMIN [Concomitant]
     Active Substance: METFORMIN HYDROCHLORIDE
     Dosage: 1000 MG, 1-0-1-0
  12. LEVOTHYROXIN [Concomitant]
     Active Substance: LEVOTHYROXINE
     Dosage: 50 ?G, 1-0-0-0
  13. ACETYLSALICYLIC ACID [Suspect]
     Active Substance: ASPIRIN
     Indication: PRODUCT USED FOR UNKNOWN INDICATION
     Dosage: 100 MG, 0-0-1-0
  14. VITAMIN D                          /00318501/ [Concomitant]
     Active Substance: CHOLECALCIFEROL
     Dosage: 1000 IE, 1-0-0-0

REACTIONS (3)
  - Haematochezia [Unknown]
  - Anaemia [Unknown]
  - General physical health deterioration [Unknown]
